APPROVED DRUG PRODUCT: FUROSEMIDE
Active Ingredient: FUROSEMIDE
Strength: 10MG/ML
Dosage Form/Route: INJECTABLE;INJECTION
Application: A074337 | Product #001
Applicant: HOSPIRA INC
Approved: Oct 31, 1994 | RLD: No | RS: No | Type: DISCN